FAERS Safety Report 4716846-6 (Version None)
Quarter: 2005Q3

REPORT INFORMATION
  Report Type: 
  Country: None (occurrence: None)
  Receive Date: 20050719
  Receipt Date: 20050704
  Transmission Date: 20060218
  Serious: Yes (Hospitalization)
  Sender: FDA-Public Use
  Company Number: FR-JNJFOC-20050601358

PATIENT
  Sex: Male
  Weight: 75 kg

DRUGS (4)
  1. REMINYL [Suspect]
     Route: 048
  2. REMINYL [Suspect]
     Dosage: 12 MG BID
     Route: 048
  3. ALLOPURINOL [Concomitant]
  4. BISOPROLOL [Concomitant]

REACTIONS (2)
  - CHOLESTASIS [None]
  - PRURITUS [None]
